FAERS Safety Report 12240161 (Version 2)
Quarter: 2016Q2

REPORT INFORMATION
  Report Type: Spontaneous
  Country: JP (occurrence: JP)
  Receive Date: 20160405
  Receipt Date: 20160505
  Transmission Date: 20160815
  Serious: Yes (Hospitalization, Other)
  Sender: FDA-Public Use
  Company Number: JP-PFIZER INC-2016142051

PATIENT
  Age: 84 Year
  Sex: Male
  Weight: 41.2 kg

DRUGS (23)
  1. ENTERONON-R [Concomitant]
     Active Substance: PROBIOTICS NOS
     Dosage: 3 G, TID
     Dates: start: 20150112, end: 20150124
  2. DIOVAN [Suspect]
     Active Substance: VALSARTAN
     Indication: HYPERTENSION
     Dosage: 80 MG, QD
     Route: 048
     Dates: start: 20150124, end: 20150205
  3. SODIUM PICOSULFATE [Concomitant]
     Active Substance: SODIUM PICOSULFATE
     Indication: CONSTIPATION
     Dosage: UNK
     Dates: start: 20150115
  4. SATOSALBE [Concomitant]
     Active Substance: ZINC OXIDE
     Indication: PROPHYLAXIS
     Dosage: UNK
     Route: 062
     Dates: start: 20150124
  5. SALIVEHT [Concomitant]
     Indication: DRY MOUTH
     Dosage: UNK
     Dates: start: 20150129
  6. CALONAL [Suspect]
     Active Substance: ACETAMINOPHEN
     Indication: PYREXIA
     Dosage: 500 MG, UNK
     Route: 048
     Dates: start: 20150130, end: 20150206
  7. CALONAL [Suspect]
     Active Substance: ACETAMINOPHEN
     Dosage: 600 MG, UNK
     Route: 048
     Dates: start: 20150207, end: 20150207
  8. GEBEN [Concomitant]
     Active Substance: SILVER SULFADIAZINE
     Indication: PROMOTION OF WOUND HEALING
     Dosage: UNK
     Route: 062
     Dates: start: 20150110, end: 20150115
  9. SORENTMIN /00774301/ [Concomitant]
     Active Substance: BROTIZOLAM
     Indication: ANXIETY
     Dosage: 0.25 MG, UNK
     Route: 048
     Dates: start: 20150125, end: 20150209
  10. FAMOTIDINE. [Concomitant]
     Active Substance: FAMOTIDINE
     Indication: HYPERCHLORHYDRIA
     Dosage: 10 MG, QD
     Route: 048
     Dates: start: 20150209, end: 20150210
  11. BIOFERMIN /01617201/ [Concomitant]
     Active Substance: BACILLUS SUBTILIS\LACTOBACILLUS ACIDOPHILUS\STREPTOCOCCUS FAECAIS
     Indication: GASTROINTESTINAL DISORDER
     Dosage: 3 G, TID
     Dates: start: 20150125, end: 20150211
  12. FAMOTIDINE. [Concomitant]
     Active Substance: FAMOTIDINE
     Dosage: 20 MG, BID
     Route: 048
     Dates: start: 20150211, end: 20150301
  13. FAMOTIDINE. [Concomitant]
     Active Substance: FAMOTIDINE
     Dosage: 10 MG, QD
     Route: 048
     Dates: start: 20150302, end: 20150308
  14. NEW LECICARBON [Concomitant]
     Active Substance: SODIUM BICARBONATE\SODIUM PHOSPHATE, MONOBASIC
     Indication: CONSTIPATION
     Dosage: 1 DF, UNK
     Route: 054
     Dates: start: 20150204, end: 20150204
  15. AMLODIPINE BESILATE [Suspect]
     Active Substance: AMLODIPINE BESYLATE
     Indication: HYPERTENSION
     Dosage: 5 MG, DAILY
     Route: 048
     Dates: start: 20150124, end: 20150205
  16. CLINDAMYCIN PHOSPHATE. [Suspect]
     Active Substance: CLINDAMYCIN PHOSPHATE
     Indication: PNEUMONIA
     Dosage: 600 MG, TID
     Route: 042
     Dates: start: 20150110, end: 20150123
  17. MEROPEN /01250502/ [Suspect]
     Active Substance: MEROPENEM
     Indication: PNEUMONIA
     Dosage: 0.5 G, TID
     Route: 042
     Dates: start: 20150110, end: 20150123
  18. GEBEN [Concomitant]
     Active Substance: SILVER SULFADIAZINE
     Indication: ANTIBIOTIC PROPHYLAXIS
  19. PASTARON SOFT [Concomitant]
     Indication: PROPHYLAXIS
     Dosage: UNK
     Route: 062
     Dates: start: 20150112
  20. NEOSTELIN GREEN [Concomitant]
     Indication: ANTIBIOTIC PROPHYLAXIS
     Dosage: UNK
     Dates: start: 20150110
  21. PRIMPERAN [Concomitant]
     Active Substance: METOCLOPRAMIDE HYDROCHLORIDE
     Indication: PROPHYLAXIS OF NAUSEA AND VOMITING
     Dosage: 5 MG, TID
     Route: 048
     Dates: start: 20150124, end: 20150128
  22. TAKEPRON OD [Suspect]
     Active Substance: LANSOPRAZOLE
     Indication: HYPERCHLORHYDRIA
     Dosage: 15 MG, QD
     Route: 048
     Dates: start: 20150118, end: 20150205
  23. GASMOTIN [Concomitant]
     Active Substance: MOSAPRIDE CITRATE
     Indication: PROPHYLAXIS OF NAUSEA AND VOMITING
     Dosage: 1.5 G, 3X/DAY
     Route: 048
     Dates: start: 20150125, end: 20150211

REACTIONS (2)
  - Toxic epidermal necrolysis [Recovering/Resolving]
  - Delirium [Recovering/Resolving]

NARRATIVE: CASE EVENT DATE: 20150202
